FAERS Safety Report 10466882 (Version 1)
Quarter: 2014Q3

REPORT INFORMATION
  Report Type: Spontaneous
  Country: US (occurrence: US)
  Receive Date: 20140922
  Receipt Date: 20140922
  Transmission Date: 20150326
  Serious: No
  Sender: FDA-Public Use
  Company Number: US-PFIZER INC-2014260155

PATIENT
  Age: 52 Year
  Sex: Male
  Weight: 89.8 kg

DRUGS (2)
  1. NICOTROL [Suspect]
     Active Substance: NICOTINE
     Dosage: UNK
     Dates: start: 20140913
  2. NICOTINE. [Suspect]
     Active Substance: NICOTINE
     Dosage: UNK

REACTIONS (4)
  - Muscle twitching [Unknown]
  - Circumstance or information capable of leading to medication error [Unknown]
  - Ageusia [Unknown]
  - Product label issue [Unknown]

NARRATIVE: CASE EVENT DATE: 201409
